FAERS Safety Report 8425563-0 (Version None)
Quarter: 2012Q2

REPORT INFORMATION
  Report Type: 
  Country: None (occurrence: None)
  Receive Date: 20120605
  Receipt Date: 20120605
  Transmission Date: 20120825
  Serious: Yes (Other)
  Sender: FDA-Public Use
  Company Number: None

PATIENT
  Age: 85 Year
  Sex: Female
  Weight: 65.7716 kg

DRUGS (2)
  1. LOTEMAX [Suspect]
     Indication: BLEPHARITIS
     Dosage: 1 DROP TWICE DAILY 2 DROPS DAILY 3 WKS EYE
     Dates: start: 20120302, end: 20120321
  2. LOTEMAX [Suspect]

REACTIONS (5)
  - LACRIMATION INCREASED [None]
  - EYE IRRITATION [None]
  - NASAL DISORDER [None]
  - OCULAR HYPERAEMIA [None]
  - CONDITION AGGRAVATED [None]
